FAERS Safety Report 15131653 (Version 5)
Quarter: 2018Q3

REPORT INFORMATION
  Report Type: Report from Study
  Country: US (occurrence: US)
  Receive Date: 20180711
  Receipt Date: 20180919
  Transmission Date: 20181010
  Serious: Yes (Hospitalization, Other)
  Sender: FDA-Public Use
  Company Number: US-BAYER-2018-120279

PATIENT
  Age: 75 Year
  Sex: Female

DRUGS (4)
  1. MARINOL [Concomitant]
     Active Substance: DRONABINOL
  2. STIVARGA [Suspect]
     Active Substance: REGORAFENIB
     Indication: COLON CANCER
     Dosage: DAILY DOSE 120 MG, 21 DAYS ON 7 DAYS OFF
     Route: 048
     Dates: start: 20180618, end: 20180711
  3. STIVARGA [Suspect]
     Active Substance: REGORAFENIB
     Indication: COLON CANCER
     Dosage: UNK
     Dates: start: 20180729
  4. STIVARGA [Suspect]
     Active Substance: REGORAFENIB
     Indication: COLON CANCER
     Dosage: 120 MG DAILY, 14 DAYS ON AND 14 DAYS OFF
     Route: 048
     Dates: start: 20180902

REACTIONS (12)
  - Off label use [None]
  - Muscle spasms [None]
  - Cardiac failure congestive [Recovering/Resolving]
  - Abdominal distension [None]
  - Decreased activity [None]
  - Weight decreased [None]
  - Decreased appetite [Recovering/Resolving]
  - Hypertension [Not Recovered/Not Resolved]
  - Abdominal pain [Recovering/Resolving]
  - Fatigue [Not Recovered/Not Resolved]
  - Dysphonia [Not Recovered/Not Resolved]
  - Adverse drug reaction [None]

NARRATIVE: CASE EVENT DATE: 2018
